FAERS Safety Report 8992352 (Version 1)
Quarter: 2012Q4

REPORT INFORMATION
  Report Type: 
  Country: FR (occurrence: FR)
  Receive Date: 20121231
  Receipt Date: 20121231
  Transmission Date: 20130627
  Serious: Yes (Other)
  Sender: FDA-Public Use
  Company Number: FR-JNJFOC-20121211643

PATIENT
  Sex: Male

DRUGS (1)
  1. IXPRIM [Suspect]
     Indication: BACK PAIN
     Route: 048
     Dates: start: 201210, end: 201212

REACTIONS (3)
  - Transient ischaemic attack [Recovered/Resolved]
  - Diplopia [Recovered/Resolved]
  - Balance disorder [Recovered/Resolved]
